FAERS Safety Report 4981837-7 (Version None)
Quarter: 2006Q2

REPORT INFORMATION
  Report Type: 
  Country: None (occurrence: None)
  Receive Date: 20060421
  Receipt Date: 20060421
  Transmission Date: 20061013
  Serious: Yes (Other)
  Sender: FDA-Public Use
  Company Number: None

PATIENT
  Sex: Female
  Weight: 37.195 kg

DRUGS (2)
  1. FENTANYL [Suspect]
     Indication: BACK PAIN
     Dosage: 100 MCG Q 48H
     Route: 062
     Dates: start: 20060120
  2. FENTANYL [Suspect]
     Indication: ROAD TRAFFIC ACCIDENT
     Dosage: 100 MCG Q 48H
     Route: 062
     Dates: start: 20060120

REACTIONS (3)
  - CONDITION AGGRAVATED [None]
  - DRUG EFFECT DECREASED [None]
  - PAIN [None]
